FAERS Safety Report 15698560 (Version 1)
Quarter: 2018Q4

REPORT INFORMATION
  Report Type: Spontaneous
  Country: GB (occurrence: GB)
  Receive Date: 20181207
  Receipt Date: 20181207
  Transmission Date: 20190205
  Serious: Yes (Other)
  Sender: FDA-Public Use
  Company Number: GB-TEVA-2018-GB-985753

PATIENT
  Age: 19 Year
  Sex: Male

DRUGS (7)
  1. SULPIRIDE [Suspect]
     Active Substance: SULPIRIDE
     Indication: PSYCHOTIC DISORDER
     Dosage: INITIAL DOSE
     Route: 065
  2. RISPERIDONE. [Suspect]
     Active Substance: RISPERIDONE
     Indication: PSYCHOTIC DISORDER
     Route: 065
  3. SULPIRIDE [Suspect]
     Active Substance: SULPIRIDE
     Dosage: 800 MILLIGRAM DAILY; FURTHER TITRATION TO 400MG.
     Route: 065
  4. ARIPIPRAZOLE. [Suspect]
     Active Substance: ARIPIPRAZOLE
     Indication: PSYCHOTIC DISORDER
     Dosage: ADR OCCURRED AT DOSES HIGHER THAN 2MG DAILY
     Route: 065
  5. METHYLPHENIDATE. [Suspect]
     Active Substance: METHYLPHENIDATE
     Indication: ATTENTION DEFICIT/HYPERACTIVITY DISORDER
     Dosage: 15 MILLIGRAM DAILY;
     Route: 065
  6. METHYLPHENIDATE. [Suspect]
     Active Substance: METHYLPHENIDATE
     Dosage: DOUBLING THE INITIAL DOSE
     Route: 065
  7. SULPIRIDE [Suspect]
     Active Substance: SULPIRIDE
     Dosage: 400 MILLIGRAM DAILY; DOSE REDUCTION
     Route: 065

REACTIONS (5)
  - Extrapyramidal disorder [Recovering/Resolving]
  - Oculogyric crisis [Recovered/Resolved]
  - Sedation [Unknown]
  - Anxiety [Recovering/Resolving]
  - Sedation complication [Unknown]
